FAERS Safety Report 9741254 (Version 1)
Quarter: 2013Q4

REPORT INFORMATION
  Report Type: Spontaneous
  Country: US (occurrence: US)
  Receive Date: 20131209
  Receipt Date: 20131209
  Transmission Date: 20140711
  Serious: No
  Sender: FDA-Public Use
  Company Number: US-BIOGENIDEC-2013BI100104

PATIENT
  Age: 33 Year
  Sex: Female

DRUGS (11)
  1. TECFIDERA [Suspect]
     Indication: MULTIPLE SCLEROSIS
     Route: 048
     Dates: start: 20130701
  2. ADVIL [Concomitant]
  3. CLONAZEPAM [Concomitant]
  4. KLONOPIN [Concomitant]
  5. LEVETIRACETAM [Concomitant]
  6. LORATADINE [Concomitant]
  7. LYSINE HCL [Concomitant]
  8. TYLENOL [Concomitant]
  9. VITAMIN B-12 [Concomitant]
  10. VITAMIN B- COMPLEX [Concomitant]
  11. ZOLOFT [Concomitant]

REACTIONS (1)
  - Bromhidrosis [Unknown]
